FAERS Safety Report 22227684 (Version 1)
Quarter: 2023Q2

REPORT INFORMATION
  Report Type: Spontaneous
  Country: US (occurrence: None)
  Receive Date: 20230419
  Receipt Date: 20230419
  Transmission Date: 20230721
  Serious: Yes (Other)
  Sender: FDA-Public Use
  Company Number: US-ROCHE-3329847

PATIENT
  Sex: Female

DRUGS (1)
  1. OCREVUS [Suspect]
     Active Substance: OCRELIZUMAB
     Indication: Multiple sclerosis
     Dosage: ONGOING YES
     Route: 065

REACTIONS (12)
  - Multiple sclerosis [Unknown]
  - Pneumonia [Unknown]
  - JC polyomavirus test positive [Not Recovered/Not Resolved]
  - Hyperhidrosis [Unknown]
  - Stress [Unknown]
  - Illness [Unknown]
  - Decreased immune responsiveness [Unknown]
  - Visual impairment [Unknown]
  - Brain fog [Unknown]
  - Dyspnoea [Unknown]
  - Asthenia [Unknown]
  - Photopsia [Unknown]
